FAERS Safety Report 10210337 (Version 1)
Quarter: 2014Q2

REPORT INFORMATION
  Report Type: Spontaneous
  Country: GB (occurrence: None)
  Receive Date: 20140528
  Receipt Date: 20140528
  Transmission Date: 20141212
  Serious: Yes (Hospitalization)
  Sender: FDA-Public Use
  Company Number: B0996103A

PATIENT
  Age: 56 Year
  Sex: Male

DRUGS (1)
  1. MELPHALAN (FORMULATION UNKNOWN) (GENERIC)  (MELPHALAN) [Suspect]
     Indication: PRODUCT USED FOR UNKNOWN INDICATION

REACTIONS (3)
  - Eccrine squamous syringometaplasia [None]
  - Staphylococcal sepsis [None]
  - Rash [None]
